FAERS Safety Report 6577449-4 (Version None)
Quarter: 2010Q1

REPORT INFORMATION
  Report Type: 
  Country: None (occurrence: None)
  Receive Date: 20100211
  Receipt Date: 20100205
  Transmission Date: 20100710
  Serious: Yes (Other)
  Sender: FDA-Public Use
  Company Number: US-BAYER-201012026NA

PATIENT
  Sex: Female

DRUGS (3)
  1. OCELLA [Suspect]
     Indication: DRUG USE FOR UNKNOWN INDICATION
  2. YASMIN [Suspect]
     Indication: DRUG USE FOR UNKNOWN INDICATION
  3. YAZ [Suspect]
     Indication: DRUG USE FOR UNKNOWN INDICATION

REACTIONS (1)
  - GALLBLADDER DISORDER [None]
